FAERS Safety Report 13901609 (Version 1)
Quarter: 2017Q3

REPORT INFORMATION
  Report Type: Report from Study
  Country: US (occurrence: US)
  Receive Date: 20170824
  Receipt Date: 20170824
  Transmission Date: 20171127
  Serious: No
  Sender: FDA-Public Use
  Company Number: PHHY2016US184567

PATIENT

DRUGS (1)
  1. GENTEAL MILD [Suspect]
     Active Substance: HYPROMELLOSE 2910 (4000 MPA.S)
     Indication: PRODUCT USED FOR UNKNOWN INDICATION
     Route: 065

REACTIONS (7)
  - Vision blurred [Unknown]
  - Asthenopia [Unknown]
  - Sensitivity to weather change [Unknown]
  - Eye pruritus [Unknown]
  - Eye irritation [Unknown]
  - Dry eye [Unknown]
  - Ocular hyperaemia [Unknown]
